FAERS Safety Report 10905915 (Version 2)
Quarter: 2015Q2

REPORT INFORMATION
  Report Type: Spontaneous
  Country: US (occurrence: US)
  Receive Date: 20150311
  Receipt Date: 20150422
  Transmission Date: 20150821
  Serious: No
  Sender: FDA-Public Use
  Company Number: US-GLAXOSMITHKLINE-US2015024927

PATIENT
  Age: 61 Year
  Sex: Male

DRUGS (2)
  1. ADVAIR DISKUS [Suspect]
     Active Substance: FLUTICASONE PROPIONATE\SALMETEROL XINAFOATE
     Indication: CHRONIC OBSTRUCTIVE PULMONARY DISEASE
     Dosage: 1 DF, BID
     Dates: start: 2011
  2. ADVAIR DISKUS [Suspect]
     Active Substance: FLUTICASONE PROPIONATE\SALMETEROL XINAFOATE
     Indication: EMPHYSEMA
     Dosage: 1 DF, BID
     Dates: start: 2011

REACTIONS (5)
  - Product quality issue [Unknown]
  - Dyspnoea [Recovered/Resolved]
  - Medication error [Unknown]
  - Drug ineffective [Recovered/Resolved]
  - Device use error [Unknown]

NARRATIVE: CASE EVENT DATE: 201502
